FAERS Safety Report 8408485-0 (Version None)
Quarter: 2012Q2

REPORT INFORMATION
  Report Type: 
  Country: None (occurrence: None)
  Receive Date: 20120604
  Receipt Date: 20120529
  Transmission Date: 20120825
  Serious: Yes (Hospitalization)
  Sender: FDA-Public Use
  Company Number: US-B.I. PHARMACEUTICALS,INC./RIDGEFIELD-2012-BP-12611BP

PATIENT
  Age: 68 Year
  Sex: Female

DRUGS (3)
  1. LISINOPRIL [Concomitant]
     Indication: HYPERTENSION
  2. PRADAXA [Suspect]
     Indication: ATRIAL FIBRILLATION
     Route: 048
     Dates: start: 20110801, end: 20111001
  3. VITAMIN B-12 [Concomitant]
     Indication: VITAMIN B12 DECREASED

REACTIONS (4)
  - LOSS OF CONSCIOUSNESS [None]
  - DIARRHOEA [None]
  - ANAEMIA [None]
  - CONTUSION [None]
